FAERS Safety Report 9056429 (Version 5)
Quarter: 2014Q2

REPORT INFORMATION
  Report Type: Report from Study
  Country: CN (occurrence: CN)
  Receive Date: 20130131
  Receipt Date: 20140411
  Transmission Date: 20141212
  Serious: Yes (Death, Life-Threatening)
  Sender: FDA-Public Use
  Company Number: CN-ROCHE-1183393

PATIENT
  Age: 70 Year
  Sex: Female
  Weight: 57 kg

DRUGS (31)
  1. CARBOPLATIN [Suspect]
     Indication: LUNG NEOPLASM MALIGNANT
     Dosage: MOST RECENT DOSE PRIOR TO SAE- 01/FEB/2012
     Route: 042
     Dates: start: 20110923
  2. PACLITAXEL [Suspect]
     Indication: LUNG NEOPLASM MALIGNANT
     Dosage: MOST RECENT DOSE PRIOR TO SAE-01/FEB/2012
     Route: 042
     Dates: start: 20110923
  3. ACARBOSE [Concomitant]
     Indication: DIABETES MELLITUS
     Route: 065
     Dates: start: 20010913
  4. GLIQUIDONE [Concomitant]
     Indication: DIABETES MELLITUS
     Route: 065
     Dates: start: 20010913
  5. ESTAZOLAM [Concomitant]
     Indication: INSOMNIA
     Route: 065
     Dates: start: 20111011
  6. METOPROLOL TARTRATE [Concomitant]
     Indication: HYPERTENSION
     Route: 065
     Dates: start: 20120130
  7. AMLODIPINE BESYLATE [Concomitant]
     Indication: HYPERTENSION
     Route: 065
     Dates: start: 20120222
  8. FOLIC ACID [Concomitant]
     Route: 065
     Dates: start: 20130105, end: 20130122
  9. DEXAMETHASONE [Concomitant]
     Route: 065
     Dates: start: 20130114, end: 20130116
  10. TROPISETRON [Concomitant]
     Route: 065
     Dates: start: 20130115, end: 20130115
  11. PEMETREXED [Concomitant]
     Indication: DISEASE PROGRESSION
     Route: 065
     Dates: start: 20130115, end: 20130115
  12. MOXIFLOXACIN [Concomitant]
     Indication: UPPER RESPIRATORY TRACT INFECTION
     Route: 065
     Dates: start: 20130122, end: 20130123
  13. IMIPENEM [Concomitant]
     Indication: RESPIRATORY TRACT INFECTION
     Route: 065
     Dates: start: 20130123, end: 20130124
  14. OMEPRAZOLE [Concomitant]
     Route: 065
     Dates: start: 20130123, end: 20130124
  15. AMINOPHYLLINE [Concomitant]
     Indication: DYSPNOEA
     Route: 065
     Dates: start: 20130123, end: 20130124
  16. AMBROXOL HYDROCHLORIDE [Concomitant]
     Route: 065
     Dates: start: 20130123, end: 20130124
  17. HUMAN ALBUMIN [Concomitant]
     Indication: HYPOPROTEINAEMIA
     Route: 065
     Dates: start: 20130123, end: 20130124
  18. INDOMETACIN [Concomitant]
     Indication: PYREXIA
     Route: 065
     Dates: start: 20130122, end: 20130122
  19. FUROSEMIDE [Concomitant]
     Indication: OLIGURIA
     Route: 065
     Dates: start: 20130123, end: 20130124
  20. TORASEMIDE [Concomitant]
     Indication: OLIGURIA
     Route: 065
     Dates: start: 20130124, end: 20130124
  21. METOCLOPRAMIDE [Concomitant]
     Indication: NAUSEA
     Route: 065
     Dates: start: 20130123, end: 20130123
  22. MORPHINE [Concomitant]
     Indication: CARDIAC FAILURE CONGESTIVE
     Route: 065
     Dates: start: 20130124, end: 20130124
  23. CEDILANID [Concomitant]
     Indication: CARDIAC FAILURE CONGESTIVE
     Route: 065
     Dates: start: 20130124, end: 20130124
  24. ATENOLOL [Concomitant]
     Route: 065
     Dates: start: 20130124, end: 20130124
  25. SODIUM BICARBONATE [Concomitant]
     Indication: METABOLIC ACIDOSIS
     Route: 065
     Dates: start: 20130124, end: 20130124
  26. DOPAMINE [Concomitant]
     Indication: HYPOTENSION
     Route: 065
     Dates: start: 20130124, end: 20130124
  27. ADRENALINE [Concomitant]
     Indication: BRADYCARDIA
     Route: 065
     Dates: start: 20130124, end: 20130124
  28. NIKETHAMIDE [Concomitant]
     Indication: BRADYPNOEA
     Route: 065
     Dates: start: 20130124, end: 20130124
  29. PLATELET CONCENTRATE [Concomitant]
     Route: 065
     Dates: start: 20130123, end: 20130124
  30. VITAMIN B12 [Concomitant]
     Route: 065
     Dates: start: 20120111, end: 20130111
  31. BEVACIZUMAB [Suspect]
     Indication: LUNG NEOPLASM MALIGNANT
     Dosage: MOST RECENT DOSE PRIOR TO SAE-15/JAN/2013
     Route: 042
     Dates: start: 20110923

REACTIONS (3)
  - Multi-organ failure [Fatal]
  - Pneumonitis [Not Recovered/Not Resolved]
  - Pulmonary haemorrhage [Not Recovered/Not Resolved]
